FAERS Safety Report 6267923-2 (Version None)
Quarter: 2009Q3

REPORT INFORMATION
  Report Type: 
  Country: None (occurrence: None)
  Receive Date: 20090713
  Receipt Date: 20090701
  Transmission Date: 20100115
  Serious: Yes (Hospitalization)
  Sender: FDA-Public Use
  Company Number: 8048600

PATIENT
  Age: 38 Year
  Sex: Female
  Weight: 26 kg

DRUGS (12)
  1. KEPPRA [Suspect]
     Dosage: 500 MG PO
     Route: 048
  2. PHENOBARBITAL TAB [Concomitant]
  3. TOPAMAX [Concomitant]
  4. SYNTHROID [Concomitant]
  5. MIRALAX [Concomitant]
  6. MULTI-VITAMIN [Concomitant]
  7. SODIUM PHOSPHATES [Concomitant]
  8. CALCIUM WITH VITAMIN D [Concomitant]
  9. DULCOLAX [Concomitant]
  10. REGLAN [Concomitant]
  11. AUGMENTIN [Concomitant]
  12. PEPCID [Concomitant]

REACTIONS (1)
  - STAPHYLOCOCCAL INFECTION [None]
